FAERS Safety Report 8914616 (Version 1)
Quarter: 2012Q4

REPORT INFORMATION
  Report Type: 
  Country: US (occurrence: US)
  Receive Date: 20121119
  Receipt Date: 20121119
  Transmission Date: 20130627
  Serious: No
  Sender: FDA-Public Use
  Company Number: US-ASTRAZENECA-2012SE72369

PATIENT
  Age: 44 Year
  Sex: Female
  Weight: 90.7 kg

DRUGS (13)
  1. NEXIUM [Suspect]
     Indication: GASTROOESOPHAGEAL REFLUX DISEASE
     Route: 048
  2. SYMBICORT [Suspect]
     Indication: ASTHMA
     Dosage: 160 MCG, TWO TIMES DAILY
     Route: 055
     Dates: start: 201210
  3. SINGULAIR [Concomitant]
     Indication: HYPERSENSITIVITY
  4. SINGULAIR [Concomitant]
     Indication: ASTHMA
  5. ATROVENT [Concomitant]
     Indication: HYPERSENSITIVITY
     Dosage: 1 SQUIRT EACH NOSTRIL, TWO TIMES A DAY
     Route: 045
     Dates: start: 2000
  6. PROAIR [Concomitant]
     Indication: ASTHMA
     Route: 055
  7. ZYRTEC [Concomitant]
     Indication: HYPERSENSITIVITY
     Route: 048
  8. FLONASE [Concomitant]
     Indication: HYPERSENSITIVITY
     Route: 045
  9. BENTYL [Concomitant]
     Indication: IRRITABLE BOWEL SYNDROME
     Route: 048
     Dates: start: 1995
  10. KLONIPIN [Concomitant]
     Indication: OESOPHAGEAL SPASM
     Route: 048
     Dates: start: 2009
  11. GENERIC PROZAC [Concomitant]
     Indication: OESOPHAGEAL SPASM
     Route: 048
     Dates: start: 2012
  12. ALVESCO [Concomitant]
     Indication: ASTHMA
     Route: 055
     Dates: start: 201210
  13. ALBUTEROL BREATHING TREATMENTS [Concomitant]

REACTIONS (8)
  - Asthma [Unknown]
  - Asthma [Unknown]
  - Asthma [Unknown]
  - Sinusitis [Unknown]
  - Hiatus hernia [Unknown]
  - Oesophageal spasm [Unknown]
  - Hypersensitivity [Unknown]
  - Hypersensitivity [Unknown]
